FAERS Safety Report 6219218-0 (Version None)
Quarter: 2009Q2

REPORT INFORMATION
  Report Type: 
  Country: None (occurrence: None)
  Receive Date: 20090605
  Receipt Date: 20090605
  Transmission Date: 20091009
  Serious: Yes (Death)
  Sender: FDA-Public Use
  Company Number: None

PATIENT
  Age: 65 Year
  Sex: Male
  Weight: 108.8633 kg

DRUGS (1)
  1. PROCRIT [Suspect]
     Indication: ANAEMIA
     Dosage: TRIPLE EVERY TWO WEEKS IM
     Route: 030
     Dates: start: 20080318, end: 20081111

REACTIONS (1)
  - CEREBROVASCULAR ACCIDENT [None]
